FAERS Safety Report 7417301-5 (Version None)
Quarter: 2011Q2

REPORT INFORMATION
  Report Type: 
  Country: None (occurrence: None)
  Receive Date: 20110415
  Receipt Date: 20110404
  Transmission Date: 20111010
  Serious: Yes (Hospitalization)
  Sender: FDA-Public Use
  Company Number: US-JNJFOC-20110405509

PATIENT
  Sex: Female
  Weight: 56.7 kg

DRUGS (2)
  1. LEVAQUIN [Suspect]
     Indication: APPENDICECTOMY
     Route: 042
  2. ETODOLAC [Concomitant]
     Indication: PSORIATIC ARTHROPATHY
     Route: 048

REACTIONS (2)
  - PRURITUS GENERALISED [None]
  - INTENTIONAL DRUG MISUSE [None]
